FAERS Safety Report 23508498 (Version 1)
Quarter: 2024Q1

REPORT INFORMATION
  Report Type: Spontaneous
  Country: GB (occurrence: None)
  Receive Date: 20240209
  Receipt Date: 20240209
  Transmission Date: 20240409
  Serious: Yes (Other)
  Sender: FDA-Public Use
  Company Number: 2024A032655

PATIENT
  Sex: Female

DRUGS (2)
  1. OMEPRAZOLE [Suspect]
     Active Substance: OMEPRAZOLE
     Indication: Non-cardiac chest pain
     Dosage: 20.0MG UNKNOWN
     Dates: start: 20231207, end: 20240115
  2. SUMATRIPTAN [Concomitant]
     Active Substance: SUMATRIPTAN
     Indication: Headache

REACTIONS (6)
  - Swelling face [Not Recovered/Not Resolved]
  - Vision blurred [Unknown]
  - Abdominal distension [Unknown]
  - Abnormal weight gain [Unknown]
  - Pollakiuria [Unknown]
  - Product use in unapproved indication [Recovered/Resolved]

NARRATIVE: CASE EVENT DATE: 20231207
